FAERS Safety Report 26139457 (Version 1)
Quarter: 2025Q4

REPORT INFORMATION
  Report Type: Spontaneous
  Country: JP (occurrence: JP)
  Receive Date: 20251210
  Receipt Date: 20251210
  Transmission Date: 20260117
  Serious: No
  Sender: UCB
  Company Number: JP-UCBJ-CD202515747UCBPHAPROD

PATIENT
  Age: 8 Decade

DRUGS (1)
  1. VIMPAT [Suspect]
     Active Substance: LACOSAMIDE
     Indication: Partial seizures
     Dosage: UNK

REACTIONS (1)
  - Atrioventricular block [Unknown]
